FAERS Safety Report 11229491 (Version 4)
Quarter: 2017Q1

REPORT INFORMATION
  Report Type: Report from Study
  Country: NL (occurrence: NL)
  Receive Date: 20150630
  Receipt Date: 20170125
  Transmission Date: 20170428
  Serious: Yes (Hospitalization)
  Sender: FDA-Public Use
  Company Number: NL-ASTRAZENECA-2015SE61728

PATIENT
  Age: 29873 Day
  Sex: Male

DRUGS (11)
  1. ACETYLSALICYLIC ACID [Suspect]
     Active Substance: ASPIRIN
     Indication: THROMBOSIS PROPHYLAXIS
     Dosage: NON-AZ PRODUCT- MAINTENANCE THERAPY
     Route: 048
     Dates: end: 20131204
  2. NTG [Concomitant]
     Active Substance: NITROGLYCERIN
  3. TICAGRELOR [Suspect]
     Active Substance: TICAGRELOR
     Indication: THROMBOSIS PROPHYLAXIS
     Route: 048
     Dates: start: 20131104, end: 20150422
  4. FOSINOPRIL [Concomitant]
     Active Substance: FOSINOPRIL
     Indication: HYPERTENSION
     Dosage: 10.0MG UNKNOWN
  5. ATORVASTATIN [Concomitant]
     Active Substance: ATORVASTATIN
     Indication: HYPERCHOLESTEROLAEMIA
     Dosage: 80.0MG UNKNOWN
  6. METOPROLOL. [Concomitant]
     Active Substance: METOPROLOL
     Indication: ACUTE MYOCARDIAL INFARCTION
     Dosage: 25.0MG UNKNOWN
  7. COLCHICINE. [Concomitant]
     Active Substance: COLCHICINE
     Indication: GOUT
     Dosage: 0.5MG UNKNOWN
  8. TAMSOLUSINE [Concomitant]
     Indication: BENIGN PROSTATIC HYPERPLASIA
     Dosage: 0.4MG UNKNOWN
  9. FOLIUMZUUR [Concomitant]
     Active Substance: FOLIC ACID
     Indication: ANAEMIA
     Dosage: 5.0MG UNKNOWN
  10. ALENDRONINEZUUR [Concomitant]
     Indication: OSTEOPOROSIS
     Dosage: 70.0MG UNKNOWN
  11. ACETYLSALICYLIC ACID [Suspect]
     Active Substance: ASPIRIN
     Indication: THROMBOSIS PROPHYLAXIS
     Dosage: NON-AZ PRODUCT- MAINTENANCE THERAPY
     Route: 048
     Dates: start: 20150422

REACTIONS (2)
  - Anaemia [Recovered/Resolved]
  - Non-cardiac chest pain [Recovered/Resolved]

NARRATIVE: CASE EVENT DATE: 20150325
